FAERS Safety Report 23709638 (Version 1)
Quarter: 2024Q2

REPORT INFORMATION
  Report Type: Spontaneous
  Country: PL (occurrence: PL)
  Receive Date: 20240404
  Receipt Date: 20240404
  Transmission Date: 20240716
  Serious: Yes (Other)
  Sender: FDA-Public Use
  Company Number: PL-BAUSCH-BL-2024-005424

PATIENT
  Age: 15 Year
  Sex: Female

DRUGS (9)
  1. PIMECROLIMUS [Suspect]
     Active Substance: PIMECROLIMUS
     Indication: Morbihan disease
     Route: 061
  2. ADAPALENE [Suspect]
     Active Substance: ADAPALENE
     Indication: Morbihan disease
     Route: 061
  3. ISOTRETINOIN [Suspect]
     Active Substance: ISOTRETINOIN
     Indication: Morbihan disease
     Route: 065
     Dates: start: 201909, end: 202003
  4. ISOTRETINOIN [Suspect]
     Active Substance: ISOTRETINOIN
     Dosage: 30 MILLIGRAM, INCREASED TO 30 MG (WITH A MAXIMUM DAILY DOSE OF 40 MG, AS 20 AND 40 MG WERE; UNK
     Route: 065
     Dates: start: 202004, end: 202106
  5. ISOTRETINOIN [Suspect]
     Active Substance: ISOTRETINOIN
     Dosage: UNK, REACHED 200 MG PER KILOGRAM OF BODY WEIGHT
     Route: 065
  6. RUPATADINE [Suspect]
     Active Substance: RUPATADINE
     Indication: Morbihan disease
     Dosage: UNK,DOUBLE- AND THEN FOURFOLD DOSE
     Route: 065
     Dates: start: 201906
  7. KETOTIFEN [Suspect]
     Active Substance: KETOTIFEN
     Indication: Morbihan disease
     Dosage: UNK
     Route: 048
     Dates: start: 201909, end: 202001
  8. SPIRONOLACTONE [Suspect]
     Active Substance: SPIRONOLACTONE
     Indication: Morbihan disease
     Dosage: UNK
     Route: 065
     Dates: start: 201909, end: 202012
  9. BILASTINE [Suspect]
     Active Substance: BILASTINE
     Indication: Morbihan disease
     Dosage: UNK
     Route: 048
     Dates: start: 202106, end: 202112

REACTIONS (3)
  - Skin irritation [Recovered/Resolved]
  - Drug ineffective for unapproved indication [Unknown]
  - Off label use [Unknown]
